FAERS Safety Report 6525196-7 (Version None)
Quarter: 2009Q4

REPORT INFORMATION
  Report Type: 
  Country: None (occurrence: None)
  Receive Date: 20091228
  Receipt Date: 20091222
  Transmission Date: 20100525
  Serious: Yes (Hospitalization)
  Sender: FDA-Public Use
  Company Number: 220004K09IRL

PATIENT
  Age: 70 Year
  Sex: Male
  Weight: 108 kg

DRUGS (12)
  1. SAIZEN [Suspect]
     Dosage: 0.2 MG, SUBCUATANEOUS
     Route: 058
     Dates: start: 20090630
  2. HYDROCORTISONE (HYDROCORTISONE /00028601/) [Concomitant]
  3. XALATAN [Concomitant]
  4. NEBIDO [Concomitant]
  5. CALCICHEW D3 FORTE (LEKOVIT CA) [Concomitant]
  6. TEVETEN PLUS (TEVETEN /01679701/) [Concomitant]
  7. CAPRIN (ACETYLSALICYLIC ACID) [Concomitant]
  8. LEVOTHYROXINE SODIUM [Concomitant]
  9. ATORVASTATIN CALCIUM [Concomitant]
  10. NORDURINE (DESMOPRESSIN ACETATE) [Concomitant]
  11. DALMANE [Concomitant]
  12. ZANDIP [ZANIDIP] (LERCANIDIPINE HYDROCHLORIDE) [Concomitant]

REACTIONS (9)
  - ASTHENIA [None]
  - BLOOD SODIUM DECREASED [None]
  - CONFUSIONAL STATE [None]
  - COUGH [None]
  - DISORIENTATION [None]
  - DRY MOUTH [None]
  - FATIGUE [None]
  - MALAISE [None]
  - MUSCLE STRAIN [None]
